FAERS Safety Report 23222359 (Version 26)
Quarter: 2024Q3

REPORT INFORMATION
  Report Type: Spontaneous
  Country: US (occurrence: US)
  Receive Date: 20231123
  Receipt Date: 20240923
  Transmission Date: 20241017
  Serious: Yes (Hospitalization, Other)
  Sender: PFIZER
  Company Number: US-PFIZER INC-PV202300189015

PATIENT
  Age: 26 Year
  Sex: Female
  Weight: 39.909 kg

DRUGS (8)
  1. DEPO-PROVERA [Suspect]
     Active Substance: MEDROXYPROGESTERONE ACETATE
     Indication: Contraception
     Dosage: 3 MONTH INJECTION
     Dates: start: 202303
  2. DEPO-PROVERA [Suspect]
     Active Substance: MEDROXYPROGESTERONE ACETATE
     Indication: Menstrual discomfort
     Dosage: UNK
     Dates: start: 202304, end: 202307
  3. DEPO-PROVERA [Suspect]
     Active Substance: MEDROXYPROGESTERONE ACETATE
     Indication: Premenstrual dysphoric disorder
  4. DEPO-PROVERA [Suspect]
     Active Substance: MEDROXYPROGESTERONE ACETATE
     Indication: Suicidal behaviour
  5. DEPO-PROVERA [Suspect]
     Active Substance: MEDROXYPROGESTERONE ACETATE
     Indication: Autism spectrum disorder
  6. AMLODIPINE [Concomitant]
     Active Substance: AMLODIPINE BESYLATE
     Indication: Raynaud^s phenomenon
     Dosage: UNK
     Dates: start: 2021, end: 202305
  7. PROPANOL (PROPRANOLOL HYDROCHLORIDE) [Concomitant]
     Active Substance: PROPRANOLOL HYDROCHLORIDE
     Indication: Anxiety
     Dosage: UNK
     Dates: start: 2021, end: 2023
  8. TRIAMCINOLONE [Concomitant]
     Active Substance: TRIAMCINOLONE
     Dosage: UNK
     Dates: start: 2021, end: 202305

REACTIONS (30)
  - Suicide attempt [Not Recovered/Not Resolved]
  - Overdose [Unknown]
  - Suicidal behaviour [Not Recovered/Not Resolved]
  - Drug dependence [Not Recovered/Not Resolved]
  - Gallbladder operation [Unknown]
  - Weight decreased [Unknown]
  - Gallbladder disorder [Not Recovered/Not Resolved]
  - Abdominal pain [Not Recovered/Not Resolved]
  - Rash [Unknown]
  - Hypoaesthesia [Unknown]
  - Hormone level abnormal [Unknown]
  - Ear inflammation [Not Recovered/Not Resolved]
  - Ear pruritus [Not Recovered/Not Resolved]
  - Ear infection [Unknown]
  - Ear swelling [Not Recovered/Not Resolved]
  - Injury [Unknown]
  - Pruritus [Unknown]
  - Inflammation [Unknown]
  - Menstruation irregular [Unknown]
  - Emotional disorder [Unknown]
  - Crying [Unknown]
  - Hypersensitivity [Unknown]
  - Condition aggravated [Not Recovered/Not Resolved]
  - Poor quality sleep [Unknown]
  - Fatigue [Unknown]
  - Blood pressure increased [Unknown]
  - Speech disorder [Unknown]
  - Fear [Unknown]
  - Vomiting [Unknown]
  - Nausea [Unknown]

NARRATIVE: CASE EVENT DATE: 20230301
